FAERS Safety Report 24144386 (Version 1)
Quarter: 2024Q3

REPORT INFORMATION
  Report Type: Spontaneous
  Country: US (occurrence: US)
  Receive Date: 20240728
  Receipt Date: 20240728
  Transmission Date: 20241016
  Serious: No
  Sender: LUPIN
  Company Number: US-LUPIN PHARMACEUTICALS INC.-2024-06858

PATIENT

DRUGS (3)
  1. BUPROPION HYDROCHLORIDE [Suspect]
     Active Substance: BUPROPION HYDROCHLORIDE
     Indication: Major depression
     Dosage: 300 MG
     Route: 065
  2. BUPROPION HYDROCHLORIDE [Suspect]
     Active Substance: BUPROPION HYDROCHLORIDE
     Indication: Disturbance in attention
  3. TRAZODONE [Concomitant]
     Active Substance: TRAZODONE HYDROCHLORIDE
     Indication: Sleep disorder
     Dosage: UNK
     Route: 065

REACTIONS (2)
  - Abdominal pain upper [Unknown]
  - Nausea [Unknown]
